FAERS Safety Report 15151022 (Version 1)
Quarter: 2018Q3

REPORT INFORMATION
  Report Type: Spontaneous
  Country: US (occurrence: US)
  Receive Date: 20180716
  Receipt Date: 20180716
  Transmission Date: 20181010
  Serious: No
  Sender: FDA-Public Use
  Company Number: US-SA-2018SA188267

PATIENT
  Age: 96 Year
  Sex: Female

DRUGS (1)
  1. PRALUENT [Suspect]
     Active Substance: ALIROCUMAB
     Indication: HYPERLIPIDAEMIA
     Dosage: 150 MG, QOW
     Route: 058
     Dates: start: 20180607, end: 20180627

REACTIONS (3)
  - Pharyngeal oedema [Unknown]
  - Contusion [Unknown]
  - Myalgia [Unknown]

NARRATIVE: CASE EVENT DATE: 20180626
